FAERS Safety Report 5217144-7 (Version None)
Quarter: 2007Q1

REPORT INFORMATION
  Report Type: 
  Country: None (occurrence: None)
  Receive Date: 20070123
  Receipt Date: 20070123
  Transmission Date: 20070707
  Serious: Yes (Life-Threatening, Hospitalization)
  Sender: FDA-Public Use
  Company Number: None

PATIENT
  Age: 25 Year
  Sex: Female
  Weight: 93.9 kg

DRUGS (1)
  1. THYMOGLOBULIN [Suspect]
     Indication: RENAL TRANSPLANT
     Dosage: 140MG  NOW  IV DRIP
     Route: 041

REACTIONS (6)
  - BLOOD PRESSURE SYSTOLIC DECREASED [None]
  - HEART RATE INCREASED [None]
  - HYPOTENSION [None]
  - INFUSION RELATED REACTION [None]
  - OXYGEN SATURATION DECREASED [None]
  - VENTRICULAR DYSFUNCTION [None]
